FAERS Safety Report 20570310 (Version 1)
Quarter: 2022Q1

REPORT INFORMATION
  Report Type: Spontaneous
  Country: IT (occurrence: IT)
  Receive Date: 20220309
  Receipt Date: 20220309
  Transmission Date: 20220424
  Serious: No
  Sender: FDA-Public Use
  Company Number: IT-LUPIN PHARMACEUTICALS INC.-2022-02925

PATIENT
  Sex: Female

DRUGS (2)
  1. METHYLPREDNISOLONE [Suspect]
     Active Substance: METHYLPREDNISOLONE
     Indication: Product used for unknown indication
     Dosage: UNK,CAME IN CONTACT WITH A METHYLPREDNISOLONE INFUSION
     Route: 065
  2. BUDESONIDE [Suspect]
     Active Substance: BUDESONIDE
     Indication: Skin test
     Dosage: UNK
     Route: 065

REACTIONS (4)
  - Hand dermatitis [Unknown]
  - Cross sensitivity reaction [Unknown]
  - Skin test positive [Unknown]
  - Occupational exposure to product [Unknown]
